FAERS Safety Report 16451841 (Version 2)
Quarter: 2019Q2

REPORT INFORMATION
  Report Type: Report from Study
  Country: CN (occurrence: CN)
  Receive Date: 20190619
  Receipt Date: 20190621
  Transmission Date: 20190711
  Serious: Yes (Death, Other)
  Sender: FDA-Public Use
  Company Number: CN-PFIZER INC-2019259028

PATIENT

DRUGS (2)
  1. CYTARABINE. [Suspect]
     Active Substance: CYTARABINE
     Indication: ACUTE MYELOID LEUKAEMIA
     Dosage: 100 MG/M2, CYCLIC (GIVEN 7 DAYS, 21-28D INTERVAL, 2 CYCLES)
     Route: 041
  2. IDARUBICIN HCL [Suspect]
     Active Substance: IDARUBICIN HYDROCHLORIDE
     Indication: ACUTE MYELOID LEUKAEMIA
     Dosage: 8 MG/M2, CYCLIC (GIVEN 3 DAYS, 21-28D INTERVAL, 2 CYCLES)
     Route: 041

REACTIONS (2)
  - Lung infection [Fatal]
  - Bone marrow failure [Unknown]
